FAERS Safety Report 6936058-5 (Version None)
Quarter: 2010Q3

REPORT INFORMATION
  Report Type: 
  Country: None (occurrence: None)
  Receive Date: 20100819
  Receipt Date: 20100819
  Transmission Date: 20110219
  Serious: No
  Sender: FDA-Public Use
  Company Number: None

PATIENT
  Age: 21 Year
  Sex: Female
  Weight: 49.8957 kg

DRUGS (2)
  1. MONONESSA 0.250 MG NORGESTIMATE JOLLC/WATSON [Suspect]
     Indication: CONTRACEPTION
     Dosage: 1 PILL ONCE A DAY PO
     Route: 048
  2. MONONESSA 0,035 MG ETHINYL ESTRADIOL JOLLC/WATSON [Suspect]
     Dosage: 1 PILL ONCE A DAY PO
     Route: 048

REACTIONS (1)
  - PANIC ATTACK [None]
